FAERS Safety Report 14255797 (Version 1)
Quarter: 2017Q4

REPORT INFORMATION
  Report Type: Spontaneous
  Country: IR (occurrence: IR)
  Receive Date: 20171206
  Receipt Date: 20171206
  Transmission Date: 20180321
  Serious: Yes (Death)
  Sender: FDA-Public Use
  Company Number: IR-ACELLA PHARMACEUTICALS, LLC-2036819

PATIENT
  Age: 35 Year
  Sex: Male

DRUGS (1)
  1. PHENYTOIN. [Suspect]
     Active Substance: PHENYTOIN

REACTIONS (3)
  - Hepatorenal syndrome [Fatal]
  - Cardiac failure [Fatal]
  - Liver injury [Fatal]
